FAERS Safety Report 18126562 (Version 1)
Quarter: 2020Q3

REPORT INFORMATION
  Report Type: Spontaneous
  Country: CA (occurrence: CA)
  Receive Date: 20200808
  Receipt Date: 20200808
  Transmission Date: 20201103
  Serious: Yes (Other)
  Sender: FDA-Public Use
  Company Number: CA-TEVA-2020-CA-1811284

PATIENT
  Age: 58 Year
  Sex: Male

DRUGS (13)
  1. BICALUTAMIDE. [Suspect]
     Active Substance: BICALUTAMIDE
     Indication: PROSTATE CANCER
     Route: 065
  2. ETRAVIRINE [Interacting]
     Active Substance: ETRAVIRINE
     Dosage: 400 MILLIGRAM DAILY;
     Route: 065
  3. EMTRICITABINE;TENOFOVIR ALAFENAMIDE FUMARATE [Concomitant]
     Indication: HIV INFECTION
     Route: 065
  4. DOLUTEGRAVIR [Interacting]
     Active Substance: DOLUTEGRAVIR
     Indication: HIV INFECTION
     Route: 065
  5. BICALUTAMIDE. [Interacting]
     Active Substance: BICALUTAMIDE
     Indication: METASTASES TO BONE
     Route: 065
  6. RITONAVIR. [Interacting]
     Active Substance: RITONAVIR
     Route: 065
  7. RALTEGRAVIR. [Concomitant]
     Active Substance: RALTEGRAVIR
     Indication: HIV INFECTION
     Route: 065
  8. LEUPRORELIN [Interacting]
     Active Substance: LEUPROLIDE ACETATE
     Indication: METASTASES TO BONE
  9. RITONAVIR. [Interacting]
     Active Substance: RITONAVIR
     Indication: HIV INFECTION
     Route: 065
  10. DARUNAVIR [Interacting]
     Active Substance: DARUNAVIR
     Indication: HIV INFECTION
     Route: 065
  11. ENZALUTAMIDE [Interacting]
     Active Substance: ENZALUTAMIDE
     Indication: PROSTATE CANCER
     Route: 065
  12. ETRAVIRINE [Interacting]
     Active Substance: ETRAVIRINE
     Indication: HIV INFECTION
     Route: 065
  13. LEUPRORELIN [Interacting]
     Active Substance: LEUPROLIDE ACETATE
     Indication: PROSTATE CANCER
     Route: 065

REACTIONS (5)
  - Drug ineffective [Unknown]
  - Product use in unapproved indication [Unknown]
  - Prostate cancer [Unknown]
  - Drug level decreased [Unknown]
  - Drug interaction [Unknown]
